FAERS Safety Report 19634517 (Version 2)
Quarter: 2021Q3

REPORT INFORMATION
  Report Type: Spontaneous
  Country: US (occurrence: US)
  Receive Date: 20210729
  Receipt Date: 20210906
  Transmission Date: 20211014
  Serious: Yes (Other)
  Sender: FDA-Public Use
  Company Number: US-GLAXOSMITHKLINE-USCH2021049091

PATIENT
  Age: 29 Year
  Sex: Male

DRUGS (1)
  1. GAS?X MAXIMUM STRENGTH SOFTGELS [Suspect]
     Active Substance: DIMETHICONE
     Indication: FLATULENCE
     Dosage: UNK UNK, U
     Dates: start: 20210726

REACTIONS (4)
  - Wrong technique in product usage process [Unknown]
  - Migraine [Unknown]
  - Foreign body in throat [Unknown]
  - Product complaint [Unknown]

NARRATIVE: CASE EVENT DATE: 20210726
